FAERS Safety Report 16145557 (Version 1)
Quarter: 2019Q2

REPORT INFORMATION
  Report Type: Spontaneous
  Country: US (occurrence: US)
  Receive Date: 20190402
  Receipt Date: 20190402
  Transmission Date: 20190711
  Serious: Yes (Other)
  Sender: FDA-Public Use
  Company Number: US-CIPLA LTD.-2019US01656

PATIENT

DRUGS (2)
  1. FLUTAMIDE. [Suspect]
     Active Substance: FLUTAMIDE
     Indication: HORMONE-REFRACTORY PROSTATE CANCER
     Dosage: UNK
     Route: 065
     Dates: start: 20130108, end: 20130128
  2. FLUTAMIDE. [Suspect]
     Active Substance: FLUTAMIDE
     Indication: METASTASIS

REACTIONS (2)
  - Drug intolerance [Unknown]
  - Adverse event [Unknown]
